FAERS Safety Report 5699728-5 (Version None)
Quarter: 2008Q2

REPORT INFORMATION
  Report Type: 
  Country: None (occurrence: None)
  Receive Date: 20080410
  Receipt Date: 20080403
  Transmission Date: 20081010
  Serious: Yes (Other)
  Sender: FDA-Public Use
  Company Number: PHEH2008US03435

PATIENT
  Age: 64 Year
  Sex: Male

DRUGS (4)
  1. ZOMETA [Suspect]
     Indication: METASTASES TO BONE
     Dosage: 4MG, QUARTERLY
     Route: 042
     Dates: start: 20050831, end: 20071201
  2. LUPRON [Concomitant]
  3. OXYCODONE HCL [Concomitant]
  4. ANTIDIABETICS [Concomitant]

REACTIONS (2)
  - OSTEONECROSIS [None]
  - TOOTH DISORDER [None]
